FAERS Safety Report 17488640 (Version 1)
Quarter: 2020Q1

REPORT INFORMATION
  Report Type: Report from Study
  Country: US (occurrence: US)
  Receive Date: 20200303
  Receipt Date: 20200303
  Transmission Date: 20200409
  Serious: No
  Sender: FDA-Public Use
  Company Number: NVSC2020US056467

PATIENT
  Age: 13 Year
  Sex: Male

DRUGS (1)
  1. OMNITROPE [Suspect]
     Active Substance: SOMATROPIN
     Indication: HYPOPITUITARISM
     Dosage: 2.6 MG, QD
     Route: 058
     Dates: start: 20200116, end: 20200225

REACTIONS (2)
  - Malaise [Unknown]
  - Device leakage [Unknown]

NARRATIVE: CASE EVENT DATE: 20200218
